FAERS Safety Report 19630813 (Version 2)
Quarter: 2022Q1

REPORT INFORMATION
  Report Type: Spontaneous
  Country: GB (occurrence: GB)
  Receive Date: 20210729
  Receipt Date: 20220328
  Transmission Date: 20220423
  Serious: Yes (Disabling)
  Sender: FDA-Public Use
  Company Number: None

PATIENT
  Age: 53 Year
  Sex: Male
  Weight: 69.85 kg

DRUGS (3)
  1. PREGABALIN [Suspect]
     Active Substance: PREGABALIN
     Indication: Ill-defined disorder
     Dosage: UNK (75)
     Route: 048
     Dates: start: 2018, end: 2018
  2. PREGABALIN [Suspect]
     Active Substance: PREGABALIN
     Indication: Headache
  3. PREGABALIN [Suspect]
     Active Substance: PREGABALIN
     Indication: Tinnitus

REACTIONS (4)
  - Paraphilia [Recovered/Resolved]
  - Sexual dysfunction [Recovered/Resolved]
  - Erectile dysfunction [Recovered/Resolved]
  - Psychosexual disorder [Recovered/Resolved]

NARRATIVE: CASE EVENT DATE: 20180101
